FAERS Safety Report 15123445 (Version 2)
Quarter: 2018Q3

REPORT INFORMATION
  Report Type: Report from Study
  Country: None (occurrence: US)
  Receive Date: 20180709
  Receipt Date: 20180821
  Transmission Date: 20181010
  Serious: Yes (Hospitalization, Other)
  Sender: FDA-Public Use
  Company Number: US-ABBVIE-18K-163-2412275-00

PATIENT
  Age: 11 Year
  Sex: Female
  Weight: 31.64 kg

DRUGS (3)
  1. HUMIRA [Suspect]
     Active Substance: ADALIMUMAB
     Indication: COLITIS ULCERATIVE
     Route: 058
     Dates: start: 20160830, end: 20180619
  2. OXYCODONE [Suspect]
     Active Substance: OXYCODONE
     Indication: PRODUCT USED FOR UNKNOWN INDICATION
     Route: 065
  3. OXYCODONE [Suspect]
     Active Substance: OXYCODONE
     Route: 065

REACTIONS (14)
  - Gastrointestinal stoma complication [Recovered/Resolved]
  - Abdominal discomfort [Recovered/Resolved]
  - Drug ineffective [Not Recovered/Not Resolved]
  - Pruritus allergic [Recovered/Resolved]
  - Intestinal fistula [Recovering/Resolving]
  - Faecal vomiting [Recovered/Resolved]
  - Faeces discoloured [Unknown]
  - Intestinal obstruction [Recovered/Resolved]
  - Urinary tract infection [Recovering/Resolving]
  - Infection [Recovering/Resolving]
  - Dermatitis allergic [Recovered/Resolved]
  - Drug hypersensitivity [Recovered/Resolved]
  - Vitamin D decreased [Recovering/Resolving]
  - Blood iron decreased [Recovering/Resolving]

NARRATIVE: CASE EVENT DATE: 20160830
